FAERS Safety Report 9744214 (Version 1)
Quarter: 2013Q4

REPORT INFORMATION
  Report Type: Spontaneous
  Country: US (occurrence: US)
  Receive Date: 20131210
  Receipt Date: 20131210
  Transmission Date: 20140711
  Serious: No
  Sender: FDA-Public Use
  Company Number: US-BIOGENIDEC-2013BI100740

PATIENT
  Sex: Female

DRUGS (13)
  1. TECFIDERA [Suspect]
     Indication: MULTIPLE SCLEROSIS
     Route: 048
     Dates: start: 201310
  2. TECFIDERA [Suspect]
     Indication: MULTIPLE SCLEROSIS
     Route: 048
  3. ZYBAN SR [Concomitant]
  4. BONE MEAL-VITAMIN D [Concomitant]
  5. FOLIC ACID [Concomitant]
  6. ECHINACEA AND GOLDEN SEAL [Concomitant]
  7. COUMADIN [Concomitant]
  8. NORVASC [Concomitant]
  9. LYRICA [Concomitant]
  10. VALIUM [Concomitant]
  11. NEXIUM [Concomitant]
  12. LEXAPRO [Concomitant]
  13. LUNESTA [Concomitant]

REACTIONS (1)
  - Flushing [Unknown]
